FAERS Safety Report 7208755-8 (Version None)
Quarter: 2011Q1

REPORT INFORMATION
  Report Type: 
  Country: None (occurrence: None)
  Receive Date: 20110104
  Receipt Date: 20101227
  Transmission Date: 20110831
  Serious: Yes (Hospitalization, Disabling)
  Sender: FDA-Public Use
  Company Number: US-PFIZER INC-2010179699

PATIENT
  Sex: Female
  Weight: 63.492 kg

DRUGS (10)
  1. SYNTHROID [Concomitant]
     Indication: THYROID DISORDER
     Dosage: 150 UG, 1X/DAY
     Route: 048
  2. CARVEDILOL [Concomitant]
     Indication: HYPERTENSION
     Dosage: 3.125 MG, 2X/DAY
  3. BENAZEPRIL [Concomitant]
     Indication: HYPERTENSION
     Dosage: 40 MG, 1X/DAY
  4. LYRICA [Suspect]
     Dosage: 75 MG, 1X/DAY, AT NIGHT
     Route: 048
     Dates: start: 20101101, end: 20101114
  5. LYRICA [Suspect]
     Dosage: 75 MG, ALTERNATE DAY
     Dates: start: 20101114
  6. CRESTOR [Concomitant]
     Indication: BLOOD TRIGLYCERIDES ABNORMAL
     Dosage: 10 MG, 1X/DAY
     Route: 048
  7. VITAMIN D [Concomitant]
     Dosage: UNK
  8. ACETYLSALICYLIC ACID [Concomitant]
     Dosage: 81 MG, 1X/DAY
  9. LYRICA [Suspect]
     Indication: NEUROPATHY PERIPHERAL
     Dosage: 150 MG, 1X/DAY
     Route: 048
     Dates: start: 20070101, end: 20101101
  10. CALCIUM [Concomitant]
     Dosage: UNK

REACTIONS (7)
  - GAIT DISTURBANCE [None]
  - DISABILITY [None]
  - ABDOMINAL PAIN UPPER [None]
  - FALL [None]
  - INSOMNIA [None]
  - HEADACHE [None]
  - SWELLING [None]
